FAERS Safety Report 7306127-9 (Version None)
Quarter: 2011Q1

REPORT INFORMATION
  Report Type: 
  Country: None (occurrence: None)
  Receive Date: 20110209
  Receipt Date: 20110128
  Transmission Date: 20110831
  Serious: Yes (Other)
  Sender: FDA-Public Use
  Company Number: US-004634

PATIENT
  Sex: Female
  Weight: 68 kg

DRUGS (3)
  1. MENOPUR [Suspect]
     Indication: INFERTILITY
     Dosage: (150 IU QD SUBCUTANEOUS)
     Route: 058
     Dates: start: 20110121, end: 20110126
  2. FOLLISTIM [Suspect]
     Indication: INFERTILITY
  3. MENOPUR [Suspect]

REACTIONS (3)
  - WEIGHT DECREASED [None]
  - OESOPHAGEAL PAIN [None]
  - OESOPHAGEAL ULCER [None]
